FAERS Safety Report 8992036 (Version 3)
Quarter: 2014Q2

REPORT INFORMATION
  Report Type: Report from Study
  Country: JP (occurrence: JP)
  Receive Date: 20121231
  Receipt Date: 20140519
  Transmission Date: 20141212
  Serious: Yes (Hospitalization)
  Sender: FDA-Public Use
  Company Number: PHHO2012JP018260

PATIENT
  Age: 76 Year
  Sex: Male
  Weight: 71 kg

DRUGS (3)
  1. EXELON [Suspect]
     Indication: DEMENTIA ALZHEIMER^S TYPE
     Dosage: 3 STEP TITRATION
     Route: 062
     Dates: start: 20121130, end: 20121217
  2. AMLODIPINE [Concomitant]
     Indication: HYPERTENSION
     Dosage: 2.5 MG, UNK
     Route: 048
     Dates: start: 20120918, end: 20121217
  3. HIRUDOID [Concomitant]
     Route: 062
     Dates: start: 20121129, end: 20121216

REACTIONS (1)
  - Dyslalia [Recovered/Resolved]
